FAERS Safety Report 17848250 (Version 7)
Quarter: 2020Q4

REPORT INFORMATION
  Report Type: Spontaneous
  Country: CA (occurrence: CA)
  Receive Date: 20200602
  Receipt Date: 20201107
  Transmission Date: 20210113
  Serious: Yes (Other)
  Sender: FDA-Public Use
  Company Number: CA-CELLTRION INC.-2017CA005459

PATIENT

DRUGS (12)
  1. INFLECTRA [Suspect]
     Active Substance: INFLIXIMAB-DYYB
     Dosage: 5 MG/KG, AT 0, 2 AND 6 WEEKS, THEN EVERY 6 WEEKS
     Route: 042
  2. OTEZLA [Concomitant]
     Active Substance: APREMILAST
     Dosage: UNK; STOP DATE: 04 MAR 2020
  3. INFLECTRA [Suspect]
     Active Substance: INFLIXIMAB-DYYB
     Indication: RHEUMATOID ARTHRITIS
     Dosage: 300 MG ((3 MG/KG)) AT 0, 2, 6 WEEKS, THEN EVERY 8 WEEKS
     Route: 042
     Dates: start: 20170420, end: 20170728
  4. INFLECTRA [Suspect]
     Active Substance: INFLIXIMAB-DYYB
     Dosage: 262 MG, EVERY 8 WEEK
     Route: 042
     Dates: start: 20170420, end: 20170728
  5. INFLECTRA [Suspect]
     Active Substance: INFLIXIMAB-DYYB
     Dosage: 262 MG, EVERY 8 WEEK
     Route: 042
     Dates: start: 20170420, end: 201710
  6. INFLECTRA [Suspect]
     Active Substance: INFLIXIMAB-DYYB
     Dosage: 5 MG/KG, AT 0, 2 AND 6 WEEKS, THEN EVERY 6 WEEKS
     Route: 042
     Dates: start: 20200522
  7. INFLECTRA [Suspect]
     Active Substance: INFLIXIMAB-DYYB
     Dosage: 5 MG/KG, AT 0, 2 AND 6 WEEKS, THEN EVERY 6 WEEKS
     Route: 042
     Dates: start: 20200821
  8. INFLECTRA [Suspect]
     Active Substance: INFLIXIMAB-DYYB
     Dosage: 5 MG/KG, AT 0, 2 AND 6 WEEKS, THEN EVERY 6 WEEKS
     Route: 042
     Dates: start: 20200421
  9. INFLECTRA [Suspect]
     Active Substance: INFLIXIMAB-DYYB
     Dosage: 5 MG/KG, AT 0, 2 AND 6 WEEKS, THEN EVERY 6 WEEKS
     Route: 042
     Dates: start: 20200707
  10. INFLECTRA [Suspect]
     Active Substance: INFLIXIMAB-DYYB
     Indication: PSORIATIC ARTHROPATHY
     Dosage: 300 MG AT 0, 2, 6 WEEKS, THEN EVERY 8 WEEKS
     Route: 042
     Dates: start: 20170728, end: 20170728
  11. INFLECTRA [Suspect]
     Active Substance: INFLIXIMAB-DYYB
     Dosage: 5 MG/KG, AT 0, 2 AND 6 WEEKS, THEN EVERY 6 WEEKS
     Route: 042
     Dates: start: 20200407
  12. INFLECTRA [Suspect]
     Active Substance: INFLIXIMAB-DYYB
     Dosage: 5 MG/KG, AT 0, 2 AND 6 WEEKS, THEN EVERY 6 WEEKS
     Route: 042
     Dates: start: 20200821, end: 20200821

REACTIONS (17)
  - Skin ulcer [Unknown]
  - Rash pruritic [Not Recovered/Not Resolved]
  - Off label use [Unknown]
  - Cough [Recovered/Resolved]
  - Nasopharyngitis [Not Recovered/Not Resolved]
  - Heart rate decreased [Unknown]
  - Skin plaque [Unknown]
  - Drug ineffective [Unknown]
  - Skin exfoliation [Unknown]
  - Skin disorder [Unknown]
  - Onycholysis [Unknown]
  - Acne [Not Recovered/Not Resolved]
  - Blood pressure increased [Not Recovered/Not Resolved]
  - Poor venous access [Unknown]
  - Rash [Not Recovered/Not Resolved]
  - Bronchitis bacterial [Unknown]
  - Blood pressure systolic increased [Unknown]

NARRATIVE: CASE EVENT DATE: 2017
